FAERS Safety Report 4802139-5 (Version None)
Quarter: 2005Q4

REPORT INFORMATION
  Report Type: 
  Country: None (occurrence: None)
  Receive Date: 20051012
  Receipt Date: 20050929
  Transmission Date: 20060501
  Serious: Yes (Death)
  Sender: FDA-Public Use
  Company Number: 218157

PATIENT
  Age: 21 Year
  Sex: Female

DRUGS (7)
  1. RITUXAN [Suspect]
     Indication: ANAEMIA HAEMOLYTIC AUTOIMMUNE
     Dosage: 375  MG/M2, 1/WEEK, INTRAVENOUS
     Route: 042
  2. TACROLIMUS (TACROLIMUS) [Concomitant]
  3. CASPOFUNGIN (CASPOFUNGIN ACETATE) [Concomitant]
  4. VALACYCLOVIR (VALACYCLOVIR) [Concomitant]
  5. PREVACID [Concomitant]
  6. URSODIOL [Concomitant]
  7. MAGNESIUM OXIDE (MAGNESIUM OXIDE) [Concomitant]

REACTIONS (9)
  - BRAIN OEDEMA [None]
  - CEREBRAL HAEMORRHAGE [None]
  - CHOLESTASIS [None]
  - HEPATIC FAILURE [None]
  - HEPATIC HAEMORRHAGE [None]
  - HEPATIC NECROSIS [None]
  - HEPATIC STEATOSIS [None]
  - HEPATOMEGALY [None]
  - RESPIRATORY DISTRESS [None]
